FAERS Safety Report 7600519-6 (Version None)
Quarter: 2011Q3

REPORT INFORMATION
  Report Type: 
  Country: None (occurrence: None)
  Receive Date: 20110706
  Receipt Date: 20110706
  Transmission Date: 20111222
  Serious: Yes (Other)
  Sender: FDA-Public Use
  Company Number: None

PATIENT
  Sex: Female
  Weight: 68.0396 kg

DRUGS (1)
  1. CRESTOR [Suspect]
     Indication: BLOOD CHOLESTEROL
     Dosage: ONE TABLET DAILY - BEDTIME
     Dates: start: 20101210, end: 20110501

REACTIONS (2)
  - HYPOAESTHESIA [None]
  - OEDEMA PERIPHERAL [None]
